FAERS Safety Report 9828406 (Version 1)
Quarter: 2014Q1

REPORT INFORMATION
  Report Type: Spontaneous
  Country: US (occurrence: US)
  Receive Date: 20140117
  Receipt Date: 20140117
  Transmission Date: 20141002
  Serious: Yes (Death, Other)
  Sender: FDA-Public Use
  Company Number: US-PFIZER INC-2014007854

PATIENT
  Age: 24 Year
  Sex: Male

DRUGS (6)
  1. DEXTROMETHORPHAN HBR [Suspect]
     Dosage: UNK
     Route: 048
  2. ETHYLENE GLYCOL [Suspect]
     Dosage: UNK
     Route: 048
  3. ACETYLSALICYLIC ACID [Suspect]
     Dosage: UNK
     Route: 048
  4. AMPHETAMINE [Suspect]
     Dosage: UNK
     Route: 048
  5. VITAMIN B3 [Suspect]
     Dosage: UNK
     Route: 048
  6. CHLORPHENIRAMINE [Suspect]
     Route: 048

REACTIONS (1)
  - Completed suicide [Fatal]
